FAERS Safety Report 8013797-9 (Version None)
Quarter: 2011Q4

REPORT INFORMATION
  Report Type: 
  Country: None (occurrence: None)
  Receive Date: 20111229
  Receipt Date: 20111223
  Transmission Date: 20120403
  Serious: Yes (Hospitalization)
  Sender: FDA-Public Use
  Company Number: GB-ABBOTT-11P-167-0886483-00

PATIENT
  Age: 23 Year
  Sex: Male

DRUGS (4)
  1. PROCYCLIDINE HYDROCHLORIDE 2MG TAB [Concomitant]
     Indication: PRODUCT USED FOR UNKNOWN INDICATION
  2. CHLORPROMAZINE [Suspect]
     Indication: PRODUCT USED FOR UNKNOWN INDICATION
     Route: 065
  3. VALPROATE SODIUM [Suspect]
     Indication: PRODUCT USED FOR UNKNOWN INDICATION
     Dosage: 500MG DAILY, 250MG, TWICE A DAY
     Route: 065
  4. LACTULOSE [Concomitant]
     Indication: PRODUCT USED FOR UNKNOWN INDICATION

REACTIONS (2)
  - PYREXIA [None]
  - NEUTROPENIA [None]
